FAERS Safety Report 13296408 (Version 2)
Quarter: 2017Q2

REPORT INFORMATION
  Report Type: Spontaneous
  Country: US (occurrence: US)
  Receive Date: 20170305
  Receipt Date: 20170502
  Transmission Date: 20170830
  Serious: No
  Sender: FDA-Public Use
  Company Number: US-009507513-1702USA011501

PATIENT
  Age: 15 Year
  Sex: Female
  Weight: 52.15 kg

DRUGS (2)
  1. NEXPLANON [Suspect]
     Active Substance: ETONOGESTREL
     Indication: PRODUCT USED FOR UNKNOWN INDICATION
     Dosage: 68 MG/ 1 ROD EVERY 3 YEARS
     Route: 059
     Dates: start: 20170221, end: 20170221
  2. NEXPLANON [Suspect]
     Active Substance: ETONOGESTREL
     Dosage: 68 MG/ 1 ROD EVERY 3 YEARS
     Route: 059
     Dates: start: 20170221

REACTIONS (4)
  - Product quality issue [Unknown]
  - Device deployment issue [Not Recovered/Not Resolved]
  - No adverse event [Unknown]
  - Device difficult to use [Recovered/Resolved]

NARRATIVE: CASE EVENT DATE: 20170221
